FAERS Safety Report 24205417 (Version 7)
Quarter: 2025Q2

REPORT INFORMATION
  Report Type: Other
  Country: US (occurrence: US)
  Receive Date: 20240813
  Receipt Date: 20250429
  Transmission Date: 20250716
  Serious: No
  Sender: TRAVERE THERAPEUTICS
  Company Number: US-TRAVERE-2024TVT00717

PATIENT
  Age: 40 Year
  Sex: Female

DRUGS (11)
  1. FILSPARI [Suspect]
     Active Substance: SPARSENTAN
     Indication: Chronic kidney disease
     Route: 048
     Dates: start: 202407
  2. FILSPARI [Suspect]
     Active Substance: SPARSENTAN
     Indication: Haematuria
     Route: 048
     Dates: start: 202410
  3. FILSPARI [Suspect]
     Active Substance: SPARSENTAN
     Indication: Chronic kidney disease
  4. FILSPARI [Suspect]
     Active Substance: SPARSENTAN
     Indication: IgA nephropathy
  5. FARXIGA [Concomitant]
     Active Substance: DAPAGLIFLOZIN PROPANEDIOL
  6. SODIUM BICARBONATE [Concomitant]
     Active Substance: SODIUM BICARBONATE
  7. IRON [Concomitant]
     Active Substance: IRON
  8. VITAMIN B [Concomitant]
     Active Substance: VITAMIN B
  9. VITAMIN D3 [Concomitant]
     Active Substance: CHOLECALCIFEROL
  10. VITAMINS [Concomitant]
     Active Substance: VITAMINS
  11. CHLORTHALIDONE [Concomitant]
     Active Substance: CHLORTHALIDONE

REACTIONS (25)
  - Dizziness [None]
  - Nausea [None]
  - Hypotension [None]
  - Fatigue [None]
  - Blood urea increased [Unknown]
  - Blood creatinine increased [Unknown]
  - Blood glucose increased [Unknown]
  - Carbon dioxide decreased [Unknown]
  - Full blood count abnormal [Unknown]
  - Blood parathyroid hormone abnormal [Unknown]
  - Renal function test abnormal [Unknown]
  - Cough [Unknown]
  - Haemoglobin decreased [Unknown]
  - Blood chloride increased [Unknown]
  - Urine protein/creatinine ratio abnormal [Unknown]
  - Weight increased [Unknown]
  - Peripheral swelling [None]
  - Fluid retention [Unknown]
  - Myalgia [Unknown]
  - Blood pressure abnormal [None]
  - Oedema peripheral [None]
  - Dyspnoea [Unknown]
  - Protein total increased [None]
  - Malaise [Unknown]
  - Muscle spasms [Unknown]

NARRATIVE: CASE EVENT DATE: 20240710
